FAERS Safety Report 4878573-4 (Version None)
Quarter: 2005Q4

REPORT INFORMATION
  Report Type: 
  Country: None (occurrence: None)
  Receive Date: 20051209
  Receipt Date: 20050504
  Transmission Date: 20060501
  Serious: Yes (Hospitalization, Other)
  Sender: FDA-Public Use
  Company Number: USA-2005-0020142

PATIENT
  Age: 50 Year
  Sex: Female
  Weight: 70.3 kg

DRUGS (4)
  1. OXYCONTIN [Suspect]
     Indication: PAIN
     Dosage: 30 MG DAILY
     Dates: start: 20030922, end: 20050504
  2. SYNTHROID [Concomitant]
  3. PROZAC [Concomitant]
  4. TRAZODONE [Concomitant]

REACTIONS (2)
  - DRUG ABUSER [None]
  - OVERDOSE [None]
